FAERS Safety Report 23588629 (Version 2)
Quarter: 2024Q1

REPORT INFORMATION
  Report Type: Spontaneous
  Country: CA (occurrence: CA)
  Receive Date: 20240302
  Receipt Date: 20240303
  Transmission Date: 20240410
  Serious: Yes (Death, Life-Threatening, Hospitalization)
  Sender: FDA-Public Use
  Company Number: CA-STRIDES ARCOLAB LIMITED-2024SP002507

PATIENT
  Age: 53 Year
  Sex: Female

DRUGS (1)
  1. PREDNISOLONE [Suspect]
     Active Substance: PREDNISOLONE
     Indication: Pulmonary sarcoidosis
     Dosage: UNK, LOW DOSE
     Route: 065

REACTIONS (7)
  - Vascular injury [Fatal]
  - Tracheal injury [Unknown]
  - Bronchial disorder [Unknown]
  - Respiratory failure [Unknown]
  - Sepsis [Unknown]
  - Pulmonary tuberculosis [Unknown]
  - Bacterial tracheitis [Unknown]
